FAERS Safety Report 10873554 (Version 1)
Quarter: 2015Q1

REPORT INFORMATION
  Report Type: Spontaneous
  Country: KR (occurrence: KR)
  Receive Date: 20150227
  Receipt Date: 20150227
  Transmission Date: 20150721
  Serious: Yes (Death)
  Sender: FDA-Public Use
  Company Number: KR-EISAI MEDICAL RESEARCH-EC-2015-004346

PATIENT
  Age: 75 Year
  Sex: Female
  Weight: 47.2 kg

DRUGS (4)
  1. STOGAR [Concomitant]
     Indication: DEMENTIA
     Route: 048
     Dates: start: 20140527, end: 20150119
  2. RENEXIN [Concomitant]
     Route: 048
     Dates: start: 20130521, end: 20150119
  3. ARICEPT [Suspect]
     Active Substance: DONEPEZIL HYDROCHLORIDE
     Indication: DEMENTIA
     Route: 048
     Dates: start: 20130521, end: 20150119
  4. CARNITIL [Concomitant]
     Indication: DEMENTIA
     Route: 048
     Dates: start: 20130521, end: 20150119

REACTIONS (1)
  - Acute myocardial infarction [Fatal]

NARRATIVE: CASE EVENT DATE: 20150119
